FAERS Safety Report 14532859 (Version 1)
Quarter: 2018Q1

REPORT INFORMATION
  Report Type: Spontaneous
  Country: TW (occurrence: TW)
  Receive Date: 20180214
  Receipt Date: 20180214
  Transmission Date: 20180509
  Serious: Yes (Death, Life-Threatening, Other)
  Sender: FDA-Public Use
  Company Number: TW-STRIDES ARCOLAB LIMITED-2018SP000990

PATIENT

DRUGS (7)
  1. MEROPENEM. [Suspect]
     Active Substance: MEROPENEM
     Indication: FEBRILE NEUTROPENIA
     Dosage: UNK
     Route: 065
  2. VANCOMYCIN [Suspect]
     Active Substance: VANCOMYCIN
     Indication: FEBRILE NEUTROPENIA
     Dosage: UNK
     Route: 065
  3. NYSTATIN. [Concomitant]
     Active Substance: NYSTATIN
     Indication: FEBRILE NEUTROPENIA
     Dosage: UNK
     Route: 065
  4. IDARUBICIN [Suspect]
     Active Substance: IDARUBICIN
     Indication: ACUTE MYELOID LEUKAEMIA
     Dosage: 9 MG/M2, UNKNOWN
     Route: 065
     Dates: start: 20121108
  5. CYTOSAR [Suspect]
     Active Substance: CYTARABINE
     Indication: ACUTE MYELOID LEUKAEMIA
     Dosage: 100 MG/M2, UNKNOWN
     Route: 041
     Dates: start: 20121108
  6. GRANULOCYTE COLONY STIMULATING FACTOR [Concomitant]
     Active Substance: GRANULOCYTE COLONY-STIMULATING FACTOR NOS
     Indication: FEBRILE NEUTROPENIA
     Dosage: 5 MCG/KG/DAY
     Route: 065
  7. FLUCONAZOLE. [Concomitant]
     Active Substance: FLUCONAZOLE
     Indication: FEBRILE NEUTROPENIA
     Dosage: 5 MG/KG/ DAY
     Route: 048

REACTIONS (14)
  - Mesenteric arterial occlusion [Unknown]
  - Renal artery occlusion [Unknown]
  - Tachycardia [Recovered/Resolved]
  - Abdominal mass [Unknown]
  - Splenic infarction [Unknown]
  - Mucormycosis [Fatal]
  - Abdominal distension [Unknown]
  - Haemorrhagic infarction [Unknown]
  - Ascites [Unknown]
  - Subcutaneous emphysema [Unknown]
  - Vomiting [Unknown]
  - Jejunal gangrene [Unknown]
  - Hypertension [Recovered/Resolved]
  - Intestinal obstruction [Unknown]
